FAERS Safety Report 11870069 (Version 1)
Quarter: 2015Q4

REPORT INFORMATION
  Report Type: Spontaneous
  Country: US (occurrence: US)
  Receive Date: 20151228
  Receipt Date: 20151228
  Transmission Date: 20160305
  Serious: Yes (Hospitalization, Other)
  Sender: FDA-Public Use
  Company Number: US-CIPLA LTD.-2015US09553

PATIENT

DRUGS (5)
  1. ZOTEPINE [Suspect]
     Active Substance: ZOTEPINE
     Dosage: UNK
     Route: 064
  2. BROMPERIDOL [Suspect]
     Active Substance: BROMPERIDOL
     Dosage: UNK
     Route: 064
  3. CLOTIAZEPAM [Suspect]
     Active Substance: CLOTIAZEPAM
     Dosage: UNK
     Route: 064
  4. TRIHEXYPHENIDYL [Suspect]
     Active Substance: TRIHEXYPHENIDYL
     Dosage: UNK
     Route: 064
  5. RISPERIDONE. [Suspect]
     Active Substance: RISPERIDONE
     Indication: SCHIZOPHRENIA
     Dosage: MOTHER TOOK 12 MG/DAY (DURATION UNKNOWN)
     Route: 064

REACTIONS (13)
  - Hyperbilirubinaemia [Unknown]
  - Shoulder dystocia [Unknown]
  - Foetal exposure during pregnancy [Unknown]
  - Shock [Unknown]
  - Use of accessory respiratory muscles [Unknown]
  - Congenital brain damage [Unknown]
  - Metabolic acidosis [Unknown]
  - Neonatal asphyxia [Unknown]
  - VIIth nerve paralysis [Unknown]
  - Subdural haemorrhage neonatal [Unknown]
  - Cyanosis [Unknown]
  - Hypotonia [Unknown]
  - Subarachnoid haemorrhage neonatal [Unknown]
